FAERS Safety Report 5973555-3 (Version None)
Quarter: 2008Q4

REPORT INFORMATION
  Report Type: 
  Country: None (occurrence: None)
  Receive Date: 20081201
  Receipt Date: 20080118
  Transmission Date: 20090506
  Serious: No
  Sender: FDA-Public Use
  Company Number: US-AMGEN-KDL259932

PATIENT
  Sex: Male

DRUGS (6)
  1. ENBREL [Suspect]
     Indication: RHEUMATOID ARTHRITIS
     Route: 058
     Dates: start: 20070905, end: 20071115
  2. METHOTREXATE [Concomitant]
     Dates: start: 20070322
  3. PREDNISONE TAB [Concomitant]
     Dates: start: 20060918
  4. ZANTAC [Concomitant]
     Dates: start: 20060101
  5. FOLIC ACID [Concomitant]
     Dates: start: 20070322
  6. ACTONEL [Concomitant]
     Dates: start: 20061016

REACTIONS (5)
  - DRUG HYPERSENSITIVITY [None]
  - INJECTION SITE ERYTHEMA [None]
  - INJECTION SITE REACTION [None]
  - INJECTION SITE WARMTH [None]
  - URTICARIA [None]
